FAERS Safety Report 4616728-4 (Version None)
Quarter: 2005Q1

REPORT INFORMATION
  Report Type: 
  Country: None (occurrence: None)
  Receive Date: 20050321
  Receipt Date: 20050304
  Transmission Date: 20050727
  Serious: Yes (Hospitalization)
  Sender: FDA-Public Use
  Company Number: 2005GB00557

PATIENT
  Age: 64 Year
  Sex: Female
  Weight: 69 kg

DRUGS (6)
  1. NOLVADEX [Suspect]
     Indication: BREAST CANCER
     Dosage: 20 MG QD PO
     Route: 048
     Dates: start: 19980519, end: 20030514
  2. PARACETAMOL [Concomitant]
  3. IBUPROFEN [Concomitant]
  4. VENTOLIN HFA [Concomitant]
  5. BECONASE [Concomitant]
  6. BECONASE [Concomitant]

REACTIONS (3)
  - COLON CANCER [None]
  - METASTASES TO LYMPH NODES [None]
  - METASTASIS [None]
